FAERS Safety Report 16899399 (Version 4)
Quarter: 2020Q2

REPORT INFORMATION
  Report Type: Spontaneous
  Country: US (occurrence: US)
  Receive Date: 20191009
  Receipt Date: 20200624
  Transmission Date: 20200713
  Serious: No
  Sender: FDA-Public Use
  Company Number: US-KARYOPHARM-2019KPT000601

PATIENT

DRUGS (8)
  1. XPOVIO [Suspect]
     Active Substance: SELINEXOR
     Indication: PLASMA CELL MYELOMA
     Dosage: 80 MG, WEEKLY
     Route: 048
     Dates: start: 20190911
  2. BISOPROLOL FUMARATE. [Concomitant]
     Active Substance: BISOPROLOL FUMARATE
     Indication: PRODUCT USED FOR UNKNOWN INDICATION
  3. GAMMA GLOBULIN [Concomitant]
     Active Substance: IMMUNE GLOBULIN NOS
     Indication: PRODUCT USED FOR UNKNOWN INDICATION
     Dosage: UNK UNK, MONTHLY
  4. NPLATE [Concomitant]
     Active Substance: ROMIPLOSTIM
     Indication: PRODUCT USED FOR UNKNOWN INDICATION
     Dosage: UNK, WEEKLY
  5. ZARXIO [Concomitant]
     Active Substance: FILGRASTIM-SNDZ
     Indication: WHITE BLOOD CELL COUNT DECREASED
     Route: 058
  6. VELCADE [Concomitant]
     Active Substance: BORTEZOMIB
     Indication: PRODUCT USED FOR UNKNOWN INDICATION
     Dosage: UNK, WEEKLY
  7. ZOMETA [Concomitant]
     Active Substance: ZOLEDRONIC ACID
     Indication: PRODUCT USED FOR UNKNOWN INDICATION
     Dosage: UNK, MONTHLY
     Route: 042
  8. GRANIX [Concomitant]
     Active Substance: TBO-FILGRASTIM
     Indication: WHITE BLOOD CELL COUNT DECREASED

REACTIONS (11)
  - Weight decreased [Unknown]
  - Diarrhoea [Recovering/Resolving]
  - Fatigue [Recovering/Resolving]
  - Thrombocytopenia [Recovering/Resolving]
  - Taste disorder [Not Recovered/Not Resolved]
  - Leukopenia [Unknown]
  - Nausea [Recovered/Resolved]
  - Product dose omission [Unknown]
  - Neutropenia [Unknown]
  - Decreased appetite [Recovering/Resolving]
  - Anaemia [Unknown]
